FAERS Safety Report 5007422-9 (Version None)
Quarter: 2006Q2

REPORT INFORMATION
  Report Type: 
  Country: None (occurrence: None)
  Receive Date: 20060518
  Receipt Date: 20060518
  Transmission Date: 20061013
  Serious: Yes (Other)
  Sender: FDA-Public Use
  Company Number: None

PATIENT
  Age: 50 Year
  Sex: Female
  Weight: 72.5755 kg

DRUGS (2)
  1. BONIVA [Suspect]
     Indication: OSTEOPOROSIS
     Dosage: 1 TABLET 1 MONTH PO
     Route: 048
     Dates: start: 20051205, end: 20060306
  2. BONIVA [Suspect]

REACTIONS (7)
  - ARTHRALGIA [None]
  - BACK PAIN [None]
  - DYSSTASIA [None]
  - PAIN IN EXTREMITY [None]
  - SHOULDER PAIN [None]
  - TOOTHACHE [None]
  - VISUAL DISTURBANCE [None]
